FAERS Safety Report 5397007-7 (Version None)
Quarter: 2007Q3

REPORT INFORMATION
  Report Type: 
  Country: None (occurrence: None)
  Receive Date: 20070725
  Receipt Date: 20070719
  Transmission Date: 20080115
  Serious: Yes (Other)
  Sender: FDA-Public Use
  Company Number: IN-ROXANE LABORATORIES, INC-2007-BP-17832RO

PATIENT
  Age: 45 Year
  Sex: Male

DRUGS (4)
  1. CITALOPRAM HYDROBROMIDE [Suspect]
     Indication: DEPRESSION
     Dosage: 20 MG/DAY
     Route: 048
  2. LITHIUM CARBONATE [Suspect]
     Indication: MANIA
     Dosage: 900 MG/DAY
     Route: 048
  3. LITHIUM CARBONATE [Suspect]
     Dosage: 600 MG/DAY
     Route: 048
     Dates: start: 20040901
  4. TRIFLUOPERAZINE HCL [Suspect]
     Indication: MANIA
     Dosage: 15 MG/DAY
     Route: 048

REACTIONS (1)
  - DYSKINESIA [None]
